FAERS Safety Report 9531599 (Version 1)
Quarter: 2013Q3

REPORT INFORMATION
  Report Type: Spontaneous
  Country: SE (occurrence: SE)
  Receive Date: 20130918
  Receipt Date: 20130918
  Transmission Date: 20140515
  Serious: Yes (Other)
  Sender: FDA-Public Use
  Company Number: SE-SANOFI-AVENTIS-2013SA090047

PATIENT
  Age: 68 Year
  Sex: Male

DRUGS (5)
  1. MULTAQ [Suspect]
     Indication: ATRIAL FIBRILLATION
     Route: 048
     Dates: start: 20120319, end: 201303
  2. ENALAPRIL [Concomitant]
  3. WARAN [Concomitant]
  4. LEVAXIN [Concomitant]
     Indication: HYPOTHYROIDISM
  5. METOPROLOL [Concomitant]

REACTIONS (4)
  - Hepatic failure [Recovered/Resolved]
  - Transaminases increased [Recovered/Resolved]
  - Blood alkaline phosphatase increased [Recovered/Resolved]
  - Atrial fibrillation [Unknown]
